FAERS Safety Report 6244311-6 (Version None)
Quarter: 2009Q2

REPORT INFORMATION
  Report Type: 
  Country: None (occurrence: None)
  Receive Date: 20090623
  Receipt Date: 20090623
  Transmission Date: 20091009
  Serious: Yes (Hospitalization)
  Sender: FDA-Public Use
  Company Number: None

PATIENT
  Sex: Female
  Weight: 76.8 kg

DRUGS (11)
  1. AZACITIDINE [Suspect]
     Indication: ACUTE MYELOID LEUKAEMIA
     Dosage: 75MG/M2 QD S/C
     Route: 058
     Dates: start: 20090519, end: 20090525
  2. BENAZEPRIL HYDROCHLORIDE [Concomitant]
  3. ACCOLATE [Concomitant]
  4. CITALOPRAM HYDROBROMIDE [Concomitant]
  5. DIAZEPAM [Concomitant]
  6. PREVACID [Concomitant]
  7. METPHORMIN [Concomitant]
  8. GEMFIBROZIL [Concomitant]
  9. HYDROCODONE BITARTRATE [Concomitant]
  10. HYDROXYUREA [Concomitant]
  11. ALLOP [Concomitant]

REACTIONS (4)
  - ACUTE RESPIRATORY DISTRESS SYNDROME [None]
  - PNEUMONIA [None]
  - SYSTEMIC INFLAMMATORY RESPONSE SYNDROME [None]
  - TACHYCARDIA [None]
